FAERS Safety Report 5748500-6 (Version None)
Quarter: 2008Q2

REPORT INFORMATION
  Report Type: 
  Country: None (occurrence: None)
  Receive Date: 20080523
  Receipt Date: 20080514
  Transmission Date: 20081010
  Serious: Yes (Other)
  Sender: FDA-Public Use
  Company Number: US-PFIZER INC-2008041743

PATIENT
  Sex: Male

DRUGS (1)
  1. NARDIL [Suspect]

REACTIONS (4)
  - AGORAPHOBIA [None]
  - ANXIETY [None]
  - FATIGUE [None]
  - MOOD SWINGS [None]
